FAERS Safety Report 12544845 (Version 2)
Quarter: 2016Q3

REPORT INFORMATION
  Report Type: Spontaneous
  Country: JP (occurrence: JP)
  Receive Date: 20160711
  Receipt Date: 20160713
  Transmission Date: 20161109
  Serious: Yes (Other)
  Sender: FDA-Public Use
  Company Number: JP-PFIZER INC-2016331242

PATIENT
  Age: 13 Year
  Sex: Male

DRUGS (1)
  1. GENOTROPIN 12 MG [Suspect]
     Active Substance: SOMATROPIN
     Dosage: 1 MG, X 6 TIMES
     Dates: start: 2016

REACTIONS (1)
  - Avulsion fracture [Unknown]
